FAERS Safety Report 8632446 (Version 2)
Quarter: 2012Q4

REPORT INFORMATION
  Report Type: 
  Country: US (occurrence: US)
  Receive Date: 20120625
  Receipt Date: 20120921
  Transmission Date: 20130627
  Serious: Yes (Hospitalization)
  Sender: FDA-Public Use
  Company Number: US-BAYER-2012-060300

PATIENT
  Age: 26 Year
  Sex: Female
  Weight: 68 kg

DRUGS (12)
  1. YAZ [Suspect]
     Indication: CONTRACEPTION
     Dosage: UNK
     Dates: start: 2004, end: 2007
  2. YAZ [Suspect]
     Indication: ACNE
     Dosage: UNK
     Dates: start: 20100903, end: 20101213
  3. YAZ [Suspect]
     Indication: PREMENSTRUAL SYNDROME
  4. OCELLA [Suspect]
     Indication: CONTRACEPTION
     Dosage: UNK
  5. OCELLA [Suspect]
     Indication: ACNE
  6. OCELLA [Suspect]
     Indication: PREMENSTRUAL SYNDROME
  7. CITALOPRAM [Concomitant]
     Indication: DEPRESSION
     Dosage: 20 mg, 1 QD (interpreted as daily)
     Dates: start: 20101124
  8. CITALOPRAM [Concomitant]
     Indication: POSTPARTUM DEPRESSION
  9. AMOXICILLIN [Concomitant]
     Dosage: 500 mg cap (interpreted as capsules)
     Dates: start: 20101023
  10. CELEXA [Concomitant]
     Dosage: 20 mg, daily
     Dates: start: 20101213
  11. PLAVIX [Concomitant]
     Dosage: UNK
  12. GENTAMICIN [Concomitant]
     Dosage: UNK

REACTIONS (11)
  - Cerebrovascular accident [None]
  - Injury [None]
  - Pain [None]
  - Muscular weakness [None]
  - Sensation of heaviness [None]
  - Hypoaesthesia [None]
  - Aphasia [None]
  - Hemiparesis [None]
  - Fatigue [None]
  - Depression [None]
  - Amnesia [None]
